FAERS Safety Report 13839099 (Version 1)
Quarter: 2017Q3

REPORT INFORMATION
  Report Type: Spontaneous
  Country: JP (occurrence: JP)
  Receive Date: 20170807
  Receipt Date: 20170807
  Transmission Date: 20171127
  Serious: Yes (Other)
  Sender: FDA-Public Use
  Company Number: PHHY2017JP115487

PATIENT
  Age: 84 Year
  Sex: Male

DRUGS (4)
  1. RIVASTACH [Suspect]
     Active Substance: RIVASTIGMINE
     Indication: DEMENTIA WITH LEWY BODIES
     Dosage: 4.5 MG, QD PATCH 2.5 (CM2)
     Route: 062
  2. RIVASTACH [Suspect]
     Active Substance: RIVASTIGMINE
     Dosage: 9 MG, QD
     Route: 062
  3. RIVASTACH [Suspect]
     Active Substance: RIVASTIGMINE
     Dosage: 18 MG, UNK
     Route: 062
  4. RIVASTACH [Suspect]
     Active Substance: RIVASTIGMINE
     Dosage: 13.5 MG, UNK
     Route: 062

REACTIONS (7)
  - Decreased appetite [Unknown]
  - Vomiting [Unknown]
  - Diarrhoea [Unknown]
  - Pyrexia [Unknown]
  - Dehydration [Unknown]
  - Delirium [Unknown]
  - Off label use [Unknown]
